FAERS Safety Report 8935584 (Version 1)
Quarter: 2012Q4

REPORT INFORMATION
  Report Type: 
  Country: US (occurrence: None)
  Receive Date: 20121128
  Receipt Date: 20121128
  Transmission Date: 20130627
  Serious: Yes (Hospitalization)
  Sender: FDA-Public Use
  Company Number: None

PATIENT
  Sex: Female
  Weight: 77.5 kg

DRUGS (1)
  1. CASPOFUNGIN ACETATE [Suspect]
     Dates: start: 20121027, end: 20121126

REACTIONS (16)
  - Neutropenia [None]
  - Enterobacter sepsis [None]
  - Klebsiella sepsis [None]
  - Caecitis [None]
  - Abdominal pain [None]
  - Depressed level of consciousness [None]
  - Incoherent [None]
  - Confusional state [None]
  - Headache [None]
  - Back pain [None]
  - Ammonia increased [None]
  - Agitation [None]
  - Metabolic encephalopathy [None]
  - Convulsion [None]
  - Blood pressure decreased [None]
  - Sinusitis [None]
